FAERS Safety Report 7656935-X (Version None)
Quarter: 2011Q3

REPORT INFORMATION
  Report Type: 
  Country: None (occurrence: None)
  Receive Date: 20110804
  Receipt Date: 20110801
  Transmission Date: 20111222
  Serious: Yes (Other)
  Sender: FDA-Public Use
  Company Number: JP-PFIZER INC-2011148311

PATIENT
  Age: 73 Year
  Sex: Female
  Weight: 46.8 kg

DRUGS (13)
  1. RINLAXER [Concomitant]
     Dosage: UNK
  2. MAGNESIUM OXIDE [Concomitant]
  3. METHYCOBAL [Concomitant]
     Dosage: UNK
  4. MUCOSTA [Concomitant]
     Dosage: UNK
  5. FAMOTIDINE [Concomitant]
     Dosage: UNK
  6. SHAKUYAKU-KANZO-TO [Concomitant]
     Dosage: UNK
  7. LYRICA [Suspect]
     Indication: PAIN IN EXTREMITY
     Dosage: 75 MG, 1X/DAY
     Route: 048
     Dates: start: 20110620, end: 20110622
  8. LYRICA [Suspect]
     Dosage: 75 MG, 2X/DAY
     Route: 048
     Dates: start: 20110623, end: 20110629
  9. NEUROTROPIN [Concomitant]
     Dosage: UNK
  10. DIMETICONE [Concomitant]
     Dosage: UNK
  11. AMLODIPINE [Concomitant]
     Dosage: UNK
  12. PRAVASTATIN SODIUM [Concomitant]
     Dosage: UNK
  13. SOLETON [Concomitant]
     Dosage: UNK

REACTIONS (2)
  - BREAST PAIN [None]
  - BREAST ENLARGEMENT [None]
